FAERS Safety Report 11451050 (Version 1)
Quarter: 2015Q3

REPORT INFORMATION
  Report Type: Spontaneous
  Country: US (occurrence: US)
  Receive Date: 20150903
  Receipt Date: 20150903
  Transmission Date: 20151125
  Serious: No
  Sender: FDA-Public Use
  Company Number: US-ROCHE-1055181

PATIENT
  Sex: Male
  Weight: 64.92 kg

DRUGS (3)
  1. COPEGUS [Suspect]
     Active Substance: RIBAVIRIN
     Indication: PRODUCT USED FOR UNKNOWN INDICATION
     Route: 048
     Dates: start: 20120330, end: 20120330
  2. PEGASYS [Suspect]
     Active Substance: PEGINTERFERON ALFA-2A
     Indication: PRODUCT USED FOR UNKNOWN INDICATION
     Route: 065
     Dates: start: 20120330
  3. COPEGUS [Suspect]
     Active Substance: RIBAVIRIN
     Route: 048
     Dates: start: 20120330

REACTIONS (7)
  - Pruritus [Unknown]
  - Fatigue [Recovered/Resolved]
  - Abdominal pain upper [Unknown]
  - Pyrexia [Recovered/Resolved]
  - Cough [Unknown]
  - Back pain [Recovered/Resolved]
  - Myalgia [Recovered/Resolved]
